FAERS Safety Report 12922218 (Version 2)
Quarter: 2016Q4

REPORT INFORMATION
  Report Type: Report from Study
  Country: US (occurrence: US)
  Receive Date: 20161108
  Receipt Date: 20161114
  Transmission Date: 20170207
  Serious: Yes (Hospitalization, Other)
  Sender: FDA-Public Use
  Company Number: US-ALEXION-A201608479

PATIENT
  Sex: Male

DRUGS (1)
  1. SOLIRIS [Suspect]
     Active Substance: ECULIZUMAB
     Indication: HAEMOLYTIC URAEMIC SYNDROME
     Dosage: 1200 MG, Q2W
     Route: 042
     Dates: start: 20150624, end: 20160920

REACTIONS (13)
  - Lumbar radiculopathy [Unknown]
  - Hypokalaemia [Unknown]
  - Spinal osteoarthritis [Unknown]
  - Anaemia [Unknown]
  - Asthenia [Unknown]
  - Chronic kidney disease [Unknown]
  - Deep vein thrombosis [Not Recovered/Not Resolved]
  - Upper respiratory tract infection [Unknown]
  - Spinal cord compression [Unknown]
  - Malaise [Unknown]
  - Muscular weakness [Unknown]
  - Urinary tract infection [Unknown]
  - Spinal column stenosis [Unknown]

NARRATIVE: CASE EVENT DATE: 20161025
